FAERS Safety Report 9204615 (Version 3)
Quarter: 2013Q3

REPORT INFORMATION
  Report Type: Spontaneous
  Country: US (occurrence: None)
  Receive Date: 20130329
  Receipt Date: 20130929
  Transmission Date: 20140515
  Serious: Yes (Hospitalization)
  Sender: FDA-Public Use
  Company Number: JPI-P-030895

PATIENT
  Age: 42 Year
  Sex: Male
  Weight: 114.31 kg

DRUGS (13)
  1. XYREM [Suspect]
     Indication: NARCOLEPSY
     Route: 048
     Dates: start: 201301, end: 2013
  2. MECLIZINE [Suspect]
     Indication: DIZZINESS
  3. CLONAZEPAM [Suspect]
     Indication: NERVOUS SYSTEM DISORDER
  4. LAMOTRIGINE [Concomitant]
  5. VITAMIN B [Concomitant]
  6. TOPIRAMATE [Concomitant]
  7. GABAPENTIN [Concomitant]
  8. PAROXETINE [Concomitant]
  9. PRIMIDONE [Concomitant]
  10. POTASSIUM [Concomitant]
  11. FOLIC ACID [Concomitant]
  12. RANITIDINE [Concomitant]
  13. PANTOPRAZOLE [Concomitant]

REACTIONS (3)
  - Loss of consciousness [None]
  - Abnormal behaviour [None]
  - Dyspnoea [None]
